FAERS Safety Report 23217745 (Version 1)
Quarter: 2023Q4

REPORT INFORMATION
  Report Type: Spontaneous
  Country: VN (occurrence: None)
  Receive Date: 20231122
  Receipt Date: 20231122
  Transmission Date: 20240110
  Serious: Yes (Other)
  Sender: FDA-Public Use
  Company Number: VN-ROCHE-3460100

PATIENT
  Age: 74 Year
  Sex: Female
  Weight: 68 kg

DRUGS (5)
  1. RITUXIMAB [Suspect]
     Active Substance: RITUXIMAB
     Indication: B-cell lymphoma refractory
     Dosage: SUBSEQUENT DOSING ON 31/1/2023, 23/2/2023, 6/4/2023, 27/4/2023, 23/5/2023
     Route: 065
     Dates: start: 20221226
  2. BENDAMUSTINE [Suspect]
     Active Substance: BENDAMUSTINE
     Indication: B-cell lymphoma refractory
     Route: 065
  3. BENDAMUSTINE [Suspect]
     Active Substance: BENDAMUSTINE
     Dosage: SUBSEQUENT DOSING ON 26/12/2022, 31/1/2023
     Route: 065
     Dates: start: 20221226
  4. BENDAMUSTINE [Suspect]
     Active Substance: BENDAMUSTINE
     Route: 065
     Dates: start: 20230223
  5. BENDAMUSTINE [Suspect]
     Active Substance: BENDAMUSTINE
     Dosage: SUBSEQUENT DOSING ON 27/4/2023, 23/5/2023
     Route: 065
     Dates: start: 20230406

REACTIONS (2)
  - Renal failure [Unknown]
  - Pruritus [Unknown]
